FAERS Safety Report 25599943 (Version 1)
Quarter: 2025Q3

REPORT INFORMATION
  Report Type: Spontaneous
  Country: JP (occurrence: JP)
  Receive Date: 20250724
  Receipt Date: 20250724
  Transmission Date: 20251021
  Serious: Yes (Hospitalization)
  Sender: ROCHE
  Company Number: JP-CHUGAI-2025023411

PATIENT
  Age: 7 Decade
  Sex: Male

DRUGS (5)
  1. TECENTRIQ [Suspect]
     Active Substance: ATEZOLIZUMAB
     Indication: Hepatocellular carcinoma
     Route: 042
  2. AVASTIN [Suspect]
     Active Substance: BEVACIZUMAB
     Indication: Hepatocellular carcinoma
     Route: 042
  3. LENVIMA [Concomitant]
     Active Substance: LENVATINIB
     Indication: Hepatocellular carcinoma
     Route: 065
  4. DURVALUMAB [Concomitant]
     Active Substance: DURVALUMAB
     Indication: Hepatocellular carcinoma
     Route: 065
  5. TREMELIMUMAB [Concomitant]
     Active Substance: TREMELIMUMAB
     Indication: Hepatocellular carcinoma
     Route: 065

REACTIONS (2)
  - Vascular pseudoaneurysm ruptured [Not Recovered/Not Resolved]
  - Pancreatitis [Not Recovered/Not Resolved]
